FAERS Safety Report 17845411 (Version 1)
Quarter: 2020Q2

REPORT INFORMATION
  Report Type: Spontaneous
  Country: GB (occurrence: GB)
  Receive Date: 20200601
  Receipt Date: 20200601
  Transmission Date: 20200714
  Serious: Yes (Other)
  Sender: FDA-Public Use
  Company Number: GB-MYLANLABS-2020M1052551

PATIENT
  Sex: Female

DRUGS (3)
  1. CLOZARIL [Suspect]
     Active Substance: CLOZAPINE
     Indication: SCHIZOPHRENIA
     Dosage: UNK
     Route: 048
     Dates: start: 20080528
  2. OLANZAPINE. [Concomitant]
     Active Substance: OLANZAPINE
  3. ZUCLOPENTIXOL [Concomitant]
     Active Substance: ZUCLOPENTHIXOL

REACTIONS (1)
  - Schizophrenia [Unknown]
